FAERS Safety Report 8304958-X (Version None)
Quarter: 2012Q2

REPORT INFORMATION
  Report Type: 
  Country: None (occurrence: None)
  Receive Date: 20120402
  Receipt Date: 20120321
  Transmission Date: 20120825
  Serious: Yes (Other)
  Sender: FDA-Public Use
  Company Number: 2012031715

PATIENT
  Age: 64 Year
  Sex: Female
  Weight: 118.3888 kg

DRUGS (15)
  1. MULTIVITAMIN (DAILY MULTIVITAMIN) [Concomitant]
  2. ALBUTEROL [Concomitant]
  3. NAPROXEN (ALEVE) [Concomitant]
  4. BUSPIRONE HCL [Concomitant]
  5. MOMENTASONE [Concomitant]
  6. SINGULAIR [Concomitant]
  7. PREDNISONE [Concomitant]
  8. MOTRIN [Concomitant]
  9. TOPAMAX [Concomitant]
  10. HIZENTRA [Suspect]
     Indication: IMMUNODEFICIENCY COMMON VARIABLE
     Dosage: (20 G 1X/WEEK, (100 ML) 6 SITES OVER 1 HOUR AND 18 MINUTES, SUBCUTANEOUS)
     Route: 058
     Dates: start: 20120313
  11. DILANTIN [Concomitant]
  12. HYDROXYZINE [Concomitant]
  13. ACETAMINOPHEN [Concomitant]
  14. DOCUSATE [Concomitant]
  15. XOPENEX [Concomitant]

REACTIONS (1)
  - URINARY TRACT INFECTION [None]
